FAERS Safety Report 15896798 (Version 1)
Quarter: 2019Q1

REPORT INFORMATION
  Report Type: Spontaneous
  Country: RU (occurrence: RU)
  Receive Date: 20190131
  Receipt Date: 20190131
  Transmission Date: 20190417
  Serious: Yes (Other)
  Sender: FDA-Public Use
  Company Number: RU-ASTRAZENECA-2017SE12064

PATIENT
  Age: 60 Year
  Sex: Female
  Weight: 120 kg

DRUGS (6)
  1. DIABETON [Concomitant]
     Active Substance: GLICLAZIDE
  2. GLUCOPHAGE [Concomitant]
     Active Substance: METFORMIN HYDROCHLORIDE
  3. BYETTA [Suspect]
     Active Substance: EXENATIDE
     Indication: TYPE 2 DIABETES MELLITUS
     Dosage: 10 MKG/2.4 ML 2 TIMES A DAY
     Route: 058
     Dates: start: 2014
  4. FORXIGA [Suspect]
     Active Substance: DAPAGLIFLOZIN
     Indication: TYPE 2 DIABETES MELLITUS
     Route: 048
  5. CRESTOR [Suspect]
     Active Substance: ROSUVASTATIN CALCIUM
     Route: 048
  6. EDARBI [Concomitant]
     Active Substance: AZILSARTAN KAMEDOXOMIL

REACTIONS (8)
  - Fatigue [Unknown]
  - Nocturia [Recovered/Resolved]
  - Furuncle [Recovered/Resolved]
  - Blood pressure increased [Not Recovered/Not Resolved]
  - Dizziness [Unknown]
  - Blood test abnormal [Unknown]
  - Blood glucose increased [Unknown]
  - Weight decreased [Not Recovered/Not Resolved]
